FAERS Safety Report 7177150-2 (Version None)
Quarter: 2010Q4

REPORT INFORMATION
  Report Type: 
  Country: None (occurrence: None)
  Receive Date: 20101220
  Receipt Date: 20101215
  Transmission Date: 20110411
  Serious: Yes (Other)
  Sender: FDA-Public Use
  Company Number: US-PFIZER INC-2010174514

PATIENT
  Sex: Male
  Weight: 81.193 kg

DRUGS (17)
  1. LIPITOR [Suspect]
     Indication: BLOOD CHOLESTEROL INCREASED
     Dosage: 40 MG, 1X/DAY
     Dates: start: 20070701
  2. ACETYLSALICYLIC ACID [Concomitant]
  3. PLAVIX [Concomitant]
  4. SITAGLIPTIN [Concomitant]
  5. TOPROL-XL [Concomitant]
  6. SALMON OIL [Concomitant]
  7. TACROLIMUS [Concomitant]
  8. GLIPIZIDE [Concomitant]
  9. ACTOS [Concomitant]
  10. GARLIC [Concomitant]
  11. UROXATRAL [Concomitant]
  12. NITROGLYCERIN [Concomitant]
  13. VIAGRA [Concomitant]
  14. RANOLAZINE [Concomitant]
  15. NEPHROCAPS [Concomitant]
  16. CELLCEPT [Concomitant]
  17. RAMIPRIL [Concomitant]

REACTIONS (4)
  - BIOPSY KIDNEY [None]
  - RED BLOOD CELL ABNORMALITY [None]
  - RENAL TUBULAR DISORDER [None]
  - URINARY CASTS PRESENT [None]
